FAERS Safety Report 22185382 (Version 1)
Quarter: 2023Q2

REPORT INFORMATION
  Report Type: Spontaneous
  Country: CA (occurrence: CA)
  Receive Date: 20230407
  Receipt Date: 20230407
  Transmission Date: 20230721
  Serious: Yes (Hospitalization, Other)
  Sender: FDA-Public Use
  Company Number: None

PATIENT
  Age: 58 Year
  Sex: Female
  Weight: 64 kg

DRUGS (12)
  1. APIXABAN [Suspect]
     Active Substance: APIXABAN
     Indication: Portal vein thrombosis
     Dosage: 1 EVERY 1 DAYS
  2. CRIZOTINIB [Suspect]
     Active Substance: CRIZOTINIB
     Indication: Uveal melanoma
     Dosage: 1 EVERY .5 DAYS
     Route: 048
  3. PREDNISOLONE [Concomitant]
     Active Substance: PREDNISOLONE
     Indication: Eye inflammation
     Route: 031
  4. SODIUM PHOSPHATE [Concomitant]
     Active Substance: SODIUM PHOSPHATE
     Indication: Product used for unknown indication
  5. DORZOLAMIDE\TIMOLOL [Concomitant]
     Active Substance: DORZOLAMIDE\TIMOLOL
     Indication: Product used for unknown indication
     Route: 065
  6. FUROSEMIDE [Concomitant]
     Active Substance: FUROSEMIDE
     Indication: Product used for unknown indication
     Route: 065
  7. HYDROMORPHONE [Concomitant]
     Active Substance: HYDROMORPHONE
     Indication: Product used for unknown indication
     Route: 065
  8. LOPERAMIDE [Concomitant]
     Active Substance: LOPERAMIDE
     Indication: Product used for unknown indication
  9. MAGNESIUM OXIDE [Concomitant]
     Active Substance: MAGNESIUM OXIDE
     Indication: Product used for unknown indication
  10. POTASSIUM CHLORIDE [Concomitant]
     Active Substance: POTASSIUM CHLORIDE
     Indication: Product used for unknown indication
     Route: 065
  11. APIXABAN [Suspect]
     Active Substance: APIXABAN
     Indication: Portal vein thrombosis
     Dosage: 1 EVERY 1 DAYS
  12. APIXABAN [Suspect]
     Active Substance: APIXABAN
     Indication: Portal vein thrombosis
     Dosage: 1 EVERY .5 DAYS

REACTIONS (2)
  - Iron deficiency anaemia [Recovered/Resolved]
  - Sepsis [Recovered/Resolved]
